FAERS Safety Report 24638221 (Version 5)
Quarter: 2025Q1

REPORT INFORMATION
  Report Type: Report from Study
  Country: US (occurrence: US)
  Receive Date: 20241119
  Receipt Date: 20250124
  Transmission Date: 20250408
  Serious: Yes (Other)
  Sender: Pyros Pharmaceuticals
  Company Number: US-PYROS PHARMACEUTICALS, INC-2024-PYROS-US000127

PATIENT
  Age: 1 Year
  Sex: Female
  Weight: 10.21 kg

DRUGS (3)
  1. VIGAFYDE [Suspect]
     Active Substance: VIGABATRIN
     Indication: Infantile spasms
     Dosage: 450 MG (4.5 ML), BID
     Route: 048
     Dates: start: 20241018, end: 202411
  2. VIGAFYDE [Suspect]
     Active Substance: VIGABATRIN
     Dosage: 750 MG (7.5 ML), BID
     Route: 048
     Dates: start: 20241118
  3. BRIVIACT [Concomitant]
     Active Substance: BRIVARACETAM
     Indication: Product used for unknown indication
     Route: 065
     Dates: start: 20241206

REACTIONS (9)
  - Seizure [Not Recovered/Not Resolved]
  - Seizure [Not Recovered/Not Resolved]
  - Condition aggravated [Not Recovered/Not Resolved]
  - Therapeutic product effect delayed [Unknown]
  - Infantile spitting up [Not Recovered/Not Resolved]
  - Diarrhoea [Recovering/Resolving]
  - Nasopharyngitis [Recovered/Resolved]
  - Nasal congestion [Recovered/Resolved]
  - Prescribed overdose [Unknown]

NARRATIVE: CASE EVENT DATE: 20241018
